FAERS Safety Report 24572262 (Version 1)
Quarter: 2024Q4

REPORT INFORMATION
  Report Type: Spontaneous
  Country: US (occurrence: US)
  Receive Date: 20241101
  Receipt Date: 20241101
  Transmission Date: 20250114
  Serious: Yes (Hospitalization)
  Sender: PFIZER
  Company Number: US-PFIZER INC-PV202400119409

PATIENT
  Age: 74 Year
  Sex: Female
  Weight: 90.72 kg

DRUGS (25)
  1. BOSULIF [Suspect]
     Active Substance: BOSUTINIB MONOHYDRATE
     Indication: Chronic myeloid leukaemia
     Dosage: TAKE ONE TABLET BY MOUTH DAILY
     Route: 048
  2. BOSULIF [Suspect]
     Active Substance: BOSUTINIB MONOHYDRATE
     Dosage: 400MG TABLET ONCE DAILY
     Dates: start: 202409
  3. OXYBUTYNIN [Concomitant]
     Active Substance: OXYBUTYNIN
     Indication: Hypertonic bladder
     Dosage: ONE TABLET THREE TIMES A DAY BY MOUTH
     Route: 048
  4. SENNA S [Concomitant]
     Active Substance: DOCUSATE SODIUM\SENNA LEAF
     Indication: Constipation
     Dosage: ONE TABLET ONCE DAILY BY MOUTH
     Route: 048
  5. ALLOPURINOL [Concomitant]
     Active Substance: ALLOPURINOL
     Indication: Blood uric acid abnormal
     Dosage: 300MG TABLET ONCE DAILY BY MOUTH
     Route: 048
  6. ASPIRIN [Concomitant]
     Active Substance: ASPIRIN
     Indication: Anticoagulant therapy
     Dosage: 81 MG, 1X/DAY
     Route: 048
  7. ATORVASTATIN [Concomitant]
     Active Substance: ATORVASTATIN
     Indication: Blood cholesterol increased
     Dosage: 40MG TABLET ONE DAILY BY MOUTH
     Route: 048
  8. BACLOFEN [Concomitant]
     Active Substance: BACLOFEN
     Indication: Muscle relaxant therapy
     Dosage: 10MG TABLET THREE TIMES A DAY BY MOUTH
     Route: 048
  9. BACLOFEN [Concomitant]
     Active Substance: BACLOFEN
     Indication: Multiple sclerosis
  10. BACLOFEN [Concomitant]
     Active Substance: BACLOFEN
     Indication: Muscle spasms
  11. BISACODYL [Concomitant]
     Active Substance: BISACODYL
     Indication: Constipation
     Dosage: 10MG SUPPOSITORY EVERY OTHER DAY OR AS NEEDED
  12. BISACODYL [Concomitant]
     Active Substance: BISACODYL
     Indication: Gastrointestinal motility disorder
  13. FIASP [Concomitant]
     Active Substance: INSULIN ASPART
     Indication: Blood insulin abnormal
     Dosage: THREE TIMES A DAY PER SLIDING SCALE, PEN
  14. INSULIN DETEMIR [Concomitant]
     Active Substance: INSULIN DETEMIR
     Indication: Diabetes mellitus
     Dosage: 500UNITS TWICE DAILY INJECTION
  15. MAGNESIUM OXIDE [Concomitant]
     Active Substance: MAGNESIUM OXIDE
     Indication: Blood magnesium decreased
     Dosage: 400MG ONE DAILY TABLET BY MOUTH
     Route: 048
  16. METFORMIN [Concomitant]
     Active Substance: METFORMIN HYDROCHLORIDE
     Indication: Diabetes mellitus
     Dosage: 500MG TABLET, TWO TABLETS BY MOUTH TWO TIMES A DAY BY MOUTH
     Route: 048
  17. METOCLOPRAMIDE [Concomitant]
     Active Substance: METOCLOPRAMIDE
     Indication: Gastrooesophageal reflux disease
     Dosage: 5MG TABLET BY MOUTH/SHE TAKES IT TWICE DAILY
     Route: 048
  18. METOPROLOL SUCCINATE [Concomitant]
     Active Substance: METOPROLOL SUCCINATE
     Indication: Blood pressure abnormal
     Dosage: 25MG 24HR TABLET ONE DAILY BY MOUTH
     Route: 048
  19. ONDANSETRON [Concomitant]
     Active Substance: ONDANSETRON
     Indication: Nausea
     Dosage: ONE BY MOUTH 30 MINUTES PRIOR TO CHEMO, BOSUTINIB, THEN EVERY 8 HOURS AS NEEDED BY MOUTH
     Route: 048
  20. SERTRALINE [Concomitant]
     Active Substance: SERTRALINE HYDROCHLORIDE
     Indication: Depression
     Dosage: 50MG TABLET ONE BY MOUTH DAILY BY MOUTH
     Route: 048
  21. SERTRALINE [Concomitant]
     Active Substance: SERTRALINE HYDROCHLORIDE
     Indication: Anxiety
  22. TRAZODONE [Concomitant]
     Active Substance: TRAZODONE HYDROCHLORIDE
     Indication: Sleep disorder
     Dosage: 50MG TABLET TWO TABLETS NIGHTLY BY MOUTH
     Route: 048
  23. TRIAMTERENE AND HYDROCHLOROTHIAZIDE [Concomitant]
     Active Substance: HYDROCHLOROTHIAZIDE\TRIAMTERENE
     Indication: Swelling
     Dosage: 37.5/25MG TABLET ONE TABLET DAILY BY MOUTH
     Route: 048
  24. TRIAMTERENE AND HYDROCHLOROTHIAZIDE [Concomitant]
     Active Substance: HYDROCHLOROTHIAZIDE\TRIAMTERENE
     Indication: Diuretic therapy
  25. YEAST [Concomitant]
     Active Substance: YEAST
     Dosage: UNK, AS NEEDED

REACTIONS (2)
  - Urinary tract infection [Recovered/Resolved]
  - Illness [Unknown]
